FAERS Safety Report 6158755-4 (Version None)
Quarter: 2009Q2

REPORT INFORMATION
  Report Type: 
  Country: None (occurrence: None)
  Receive Date: 20090417
  Receipt Date: 20090415
  Transmission Date: 20091009
  Serious: Yes (Disabling)
  Sender: FDA-Public Use
  Company Number: B0566155A

PATIENT
  Age: 67 Year
  Sex: Female

DRUGS (7)
  1. CLENIL MODULITE [Suspect]
     Indication: ASTHMA
     Route: 055
  2. SEREVENT [Suspect]
     Indication: DRUG USE FOR UNKNOWN INDICATION
     Route: 055
  3. SERETIDE [Suspect]
     Indication: DRUG USE FOR UNKNOWN INDICATION
     Route: 055
  4. SYMBICORT [Suspect]
     Indication: DRUG USE FOR UNKNOWN INDICATION
     Route: 055
  5. OMEPRAZOL [Concomitant]
     Dosage: 20MG PER DAY
     Route: 048
  6. MOMETASONE FUROATE [Concomitant]
     Dosage: 50MG PER DAY
     Route: 045
  7. SALBUTAMOL [Concomitant]
     Route: 055

REACTIONS (3)
  - ADVERSE EVENT [None]
  - OROPHARYNGEAL PAIN [None]
  - RASH [None]
